FAERS Safety Report 8401971-9 (Version None)
Quarter: 2012Q2

REPORT INFORMATION
  Report Type: 
  Country: None (occurrence: None)
  Receive Date: 20120601
  Receipt Date: 20120530
  Transmission Date: 20120825
  Serious: Yes (Hospitalization)
  Sender: FDA-Public Use
  Company Number: US-PFIZER INC-2012053577

PATIENT
  Sex: Male
  Weight: 111 kg

DRUGS (11)
  1. TIKOSYN [Suspect]
     Indication: ARRHYTHMIA
  2. PRADAXA [Suspect]
     Indication: ANTICOAGULANT THERAPY
     Dosage: 150 MG, 2X/DAY
     Dates: start: 20120212
  3. CARDIZEM [Concomitant]
     Indication: ATRIAL FIBRILLATION
     Dosage: 180 MG, UNK
  4. TIKOSYN [Suspect]
     Indication: CARDIAC DISORDER
  5. ADVAIR DISKUS 100/50 [Concomitant]
     Dosage: UNK
  6. SINGULAIR [Concomitant]
     Indication: ASTHMA
  7. PROAIR HFA [Concomitant]
     Indication: ASTHMA
  8. SINGULAIR [Concomitant]
     Indication: HYPERSENSITIVITY
     Dosage: 10 MG, UNK
  9. PROAIR HFA [Concomitant]
     Indication: DYSPNOEA
     Dosage: UNK
  10. CARDIZEM [Concomitant]
     Indication: ARRHYTHMIA
  11. TIKOSYN [Suspect]
     Indication: ATRIAL FIBRILLATION
     Dosage: 0.5 MG, 2X/DAY
     Route: 048
     Dates: start: 20120212

REACTIONS (10)
  - ATRIAL FIBRILLATION [None]
  - PROSTATITIS [None]
  - DIZZINESS [None]
  - PALPITATIONS [None]
  - FATIGUE [None]
  - SKIN EXFOLIATION [None]
  - DYSPNOEA [None]
  - ANXIETY [None]
  - MEDICATION ERROR [None]
  - FEAR [None]
